FAERS Safety Report 25935781 (Version 1)
Quarter: 2025Q4

REPORT INFORMATION
  Report Type: Report from Study
  Country: KW (occurrence: KW)
  Receive Date: 20251017
  Receipt Date: 20251017
  Transmission Date: 20260117
  Serious: Yes (Other)
  Sender: ELI LILLY AND COMPANY
  Company Number: KW-ELI_LILLY_AND_COMPANY-KW202510014837

PATIENT
  Age: 46 Year
  Sex: Female

DRUGS (2)
  1. VERZENIO [Suspect]
     Active Substance: ABEMACICLIB
     Indication: Breast cancer
     Dosage: 150 MG, UNKNOWN
     Route: 065
     Dates: start: 202504, end: 202509
  2. FEMARA [Concomitant]
     Active Substance: LETROZOLE
     Indication: Product used for unknown indication
     Dosage: 2.5 MG

REACTIONS (2)
  - Thrombosis [Unknown]
  - Malaise [Unknown]

NARRATIVE: CASE EVENT DATE: 20250828
